FAERS Safety Report 4873594-X (Version None)
Quarter: 2005Q4

REPORT INFORMATION
  Report Type: 
  Country: None (occurrence: None)
  Receive Date: 20051201
  Receipt Date: 20050823
  Transmission Date: 20060501
  Serious: No
  Sender: FDA-Public Use
  Company Number: 2005PV001476

PATIENT
  Sex: Male

DRUGS (3)
  1. BYETTA [Suspect]
     Indication: DIABETES MELLITUS
     Dosage: 5 MCG;BID;SC
     Route: 058
     Dates: start: 20050801, end: 20050801
  2. ACTOS [Concomitant]
  3. OTHER MEDICATIONS [Concomitant]

REACTIONS (2)
  - DIABETIC NEUROPATHY [None]
  - PAIN IN EXTREMITY [None]
